FAERS Safety Report 5356267-9 (Version None)
Quarter: 2007Q2

REPORT INFORMATION
  Report Type: 
  Country: None (occurrence: None)
  Receive Date: 20070613
  Receipt Date: 20070601
  Transmission Date: 20071010
  Serious: Yes (Life-Threatening, Hospitalization, Other)
  Sender: FDA-Public Use
  Company Number: US-PFIZER INC-2006111340

PATIENT
  Sex: Male

DRUGS (1)
  1. DILANTIN [Suspect]
     Indication: CONVULSION

REACTIONS (10)
  - COGNITIVE DISORDER [None]
  - CONJUNCTIVITIS BACTERIAL [None]
  - CONVULSION [None]
  - DEPRESSION [None]
  - DIZZINESS [None]
  - INSOMNIA [None]
  - PHARYNGITIS STREPTOCOCCAL [None]
  - PHYSICAL DISABILITY [None]
  - STEVENS-JOHNSON SYNDROME [None]
  - TOXIC EPIDERMAL NECROLYSIS [None]
